FAERS Safety Report 12628592 (Version 2)
Quarter: 2016Q4

REPORT INFORMATION
  Report Type: Spontaneous
  Country: US (occurrence: US)
  Receive Date: 20160808
  Receipt Date: 20161130
  Transmission Date: 20170207
  Serious: No
  Sender: FDA-Public Use
  Company Number: US-JAZZ-2016-US-004324

PATIENT
  Sex: Female

DRUGS (11)
  1. AMLODIPINE BESYLATE. [Concomitant]
     Active Substance: AMLODIPINE BESYLATE
  2. GABAPENTIN. [Concomitant]
     Active Substance: GABAPENTIN
  3. XYREM [Suspect]
     Active Substance: SODIUM OXYBATE
     Indication: HYPERSOMNIA
     Dosage: 4.5 G, BID
     Route: 048
     Dates: start: 200410
  4. VALSARTAN. [Concomitant]
     Active Substance: VALSARTAN
  5. HYDROCODONE [Concomitant]
     Active Substance: HYDROCODONE
  6. BISOPROLOL FUMARATE. [Concomitant]
     Active Substance: BISOPROLOL FUMARATE
  7. ZETIA [Concomitant]
     Active Substance: EZETIMIBE
  8. OMEPRAZOLE. [Concomitant]
     Active Substance: OMEPRAZOLE
  9. TOPAMAX [Concomitant]
     Active Substance: TOPIRAMATE
  10. FENOFIBRATE. [Concomitant]
     Active Substance: FENOFIBRATE
  11. HYDRALAZINE [Concomitant]
     Active Substance: HYDRALAZINE HYDROCHLORIDE

REACTIONS (1)
  - Arthritis [Not Recovered/Not Resolved]
